FAERS Safety Report 8311337-8 (Version None)
Quarter: 2012Q2

REPORT INFORMATION
  Report Type: 
  Country: None (occurrence: None)
  Receive Date: 20120425
  Receipt Date: 20120416
  Transmission Date: 20120825
  Serious: Yes (Other)
  Sender: FDA-Public Use
  Company Number: JP-GLAXOSMITHKLINE-B0796987A

PATIENT
  Age: 71 Year
  Sex: Female

DRUGS (4)
  1. ZOVIRAX [Suspect]
     Indication: UVEITIS
     Route: 031
  2. BETAMETHASONE [Suspect]
     Route: 061
  3. FLUOROMETHOLONE [Suspect]
     Route: 061
  4. VALACYCLOVIR HYDROCHLORIDE [Concomitant]
     Dosage: 3000MG PER DAY
     Route: 048

REACTIONS (9)
  - KERATITIS [None]
  - PATHOGEN RESISTANCE [None]
  - HYPERAEMIA [None]
  - DRY EYE [None]
  - VISUAL ACUITY REDUCED [None]
  - CORNEAL EROSION [None]
  - LAGOPHTHALMOS [None]
  - FOREIGN BODY SENSATION IN EYES [None]
  - CORNEAL DEGENERATION [None]
